FAERS Safety Report 9717067 (Version 2)
Quarter: 2015Q3

REPORT INFORMATION
  Report Type: Spontaneous
  Country: US (occurrence: US)
  Receive Date: 20131127
  Receipt Date: 20150804
  Transmission Date: 20151125
  Serious: No
  Sender: FDA-Public Use
  Company Number: US-GILEAD-2009-0020748

PATIENT
  Age: 72 Year
  Sex: Female

DRUGS (9)
  1. LASIX [Concomitant]
     Active Substance: FUROSEMIDE
  2. KLOR-CON [Concomitant]
     Active Substance: POTASSIUM CHLORIDE
  3. ACIPHEX [Concomitant]
     Active Substance: RABEPRAZOLE SODIUM
  4. SPIRONOLACTONE. [Concomitant]
     Active Substance: SPIRONOLACTONE
  5. CYTOXAN [Concomitant]
     Active Substance: CYCLOPHOSPHAMIDE
  6. PREDNISONE. [Concomitant]
     Active Substance: PREDNISONE
  7. CITALOPRAM [Concomitant]
     Active Substance: CITALOPRAM HYDROBROMIDE
  8. COLACE [Concomitant]
     Active Substance: DOCUSATE SODIUM
  9. LETAIRIS [Suspect]
     Active Substance: AMBRISENTAN
     Route: 048

REACTIONS (1)
  - Hepatic enzyme increased [Recovered/Resolved]

NARRATIVE: CASE EVENT DATE: 20090206
